FAERS Safety Report 11798069 (Version 2)
Quarter: 2015Q4

REPORT INFORMATION
  Report Type: Spontaneous
  Country: US (occurrence: US)
  Receive Date: 20151203
  Receipt Date: 20151210
  Transmission Date: 20160305
  Serious: No
  Sender: FDA-Public Use
  Company Number: US-PFIZER INC-2015411115

PATIENT
  Age: 55 Year
  Sex: Female
  Weight: 78 kg

DRUGS (7)
  1. OLEA EUROPAEA LEAF EXTRACT [Suspect]
     Active Substance: HERBALS
     Indication: IMMUNE SYSTEM DISORDER
     Dosage: 150 MG, 1X/DAY
     Dates: start: 201510
  2. VITAMIN D3 [Suspect]
     Active Substance: CHOLECALCIFEROL
     Indication: BONE DISORDER
     Dosage: 2000 UNITS, 1X/DAY
  3. VITAMIN D3 [Suspect]
     Active Substance: CHOLECALCIFEROL
     Indication: TOOTH DISORDER
  4. VITAMIN D3 [Suspect]
     Active Substance: CHOLECALCIFEROL
     Indication: MUSCLE DISORDER
  5. VITAMIN D3 [Suspect]
     Active Substance: CHOLECALCIFEROL
     Indication: IMMUNE SYSTEM DISORDER
  6. LYRICA [Interacting]
     Active Substance: PREGABALIN
     Indication: NEUROPATHY PERIPHERAL
     Dosage: 150 MG, 2X/DAY (50MG CAPSULE; 3 IN THE MORNING AND 3 AT NIGHT)
     Route: 048
     Dates: start: 201503
  7. ESTRADIOL. [Suspect]
     Active Substance: ESTRADIOL
     Dosage: 1 MG, 3 WEEKS ON AND 1 WEEK OFF
     Route: 048
     Dates: start: 2012

REACTIONS (6)
  - Screaming [Unknown]
  - Hallucination [Not Recovered/Not Resolved]
  - Drug interaction [Not Recovered/Not Resolved]
  - Abnormal behaviour [Unknown]
  - Weight increased [Recovering/Resolving]
  - Amnesia [Unknown]

NARRATIVE: CASE EVENT DATE: 201504
